FAERS Safety Report 7577197-8 (Version None)
Quarter: 2011Q2

REPORT INFORMATION
  Report Type: 
  Country: None (occurrence: None)
  Receive Date: 20110628
  Receipt Date: 20110523
  Transmission Date: 20111010
  Serious: No
  Sender: FDA-Public Use
  Company Number: US-BAYER-2011-045289

PATIENT
  Age: 69 Year
  Sex: Female
  Weight: 68 kg

DRUGS (3)
  1. LOTREL [Concomitant]
  2. SUDAFED 12 HOUR [Concomitant]
  3. ALEVE (CAPLET) [Suspect]
     Indication: MYALGIA
     Dosage: 1 DF, QD
     Route: 048
     Dates: start: 20110521, end: 20110523

REACTIONS (1)
  - RASH MACULAR [None]
